FAERS Safety Report 8167435-5 (Version None)
Quarter: 2012Q1

REPORT INFORMATION
  Report Type: 
  Country: None (occurrence: None)
  Receive Date: 20120221
  Receipt Date: 20120208
  Transmission Date: 20120608
  Serious: Yes (Hospitalization, Other)
  Sender: FDA-Public Use
  Company Number: ABR_00358_2012

PATIENT
  Age: 75 Year
  Sex: Female

DRUGS (4)
  1. ASPIRIN [Concomitant]
  2. HYDRALAZINE HCL W/ ISOSORBIDE DINITRATE [Suspect]
     Indication: PRODUCT USED FOR UNKNOWN INDICATION
     Dosage: 2 DF TID [20MG/37.5MG]
  3. AMLODIPINE [Concomitant]
  4. FUROSEMIDE [Concomitant]

REACTIONS (10)
  - CREPITATIONS [None]
  - RESPIRATORY DISTRESS [None]
  - COUGH [None]
  - TACHYCARDIA [None]
  - LUNG INFILTRATION [None]
  - LUNG CONSOLIDATION [None]
  - TACHYPNOEA [None]
  - PULMONARY RENAL SYNDROME [None]
  - VASCULITIS NECROTISING [None]
  - CARDIAC MURMUR [None]
